FAERS Safety Report 4625494-8 (Version None)
Quarter: 2005Q2

REPORT INFORMATION
  Report Type: 
  Country: None (occurrence: None)
  Receive Date: 20050325
  Receipt Date: 20050117
  Transmission Date: 20051028
  Serious: No
  Sender: FDA-Public Use
  Company Number: USA050188471

PATIENT
  Age: 67 Year
  Sex: Female
  Weight: 50 kg

DRUGS (5)
  1. FORTEO [Suspect]
     Indication: OSTEOPOROSIS
     Dosage: 20 UG/1 DAY
     Dates: start: 20040201
  2. NORVASC [Concomitant]
  3. FOSAMAX (ALEDNRONATE SODIUM) [Concomitant]
  4. BEXTRA [Concomitant]
  5. CALCIUM GLUCONATE [Concomitant]

REACTIONS (1)
  - ANKLE FRACTURE [None]
